FAERS Safety Report 9478278 (Version 2)
Quarter: 2013Q3

REPORT INFORMATION
  Report Type: Report from Study
  Country: HN (occurrence: HN)
  Receive Date: 20130827
  Receipt Date: 20130906
  Transmission Date: 20140515
  Serious: Yes (Hospitalization)
  Sender: FDA-Public Use
  Company Number: HN-NOVOPROD-386035

PATIENT
  Age: 67 Year
  Sex: Female
  Weight: 78 kg

DRUGS (5)
  1. NOVORAPID FLEXPEN [Suspect]
     Indication: TYPE 1 DIABETES MELLITUS
     Dosage: 10 IU ONLY IF BLOOD GLUCOSE ARE HIGHER THAT 150 MG/DL
     Route: 058
     Dates: start: 20130517
  2. NPH INSULIN [Concomitant]
     Dosage: 65 IU MORNING AND 35 IU NIGHT
     Route: 065
  3. LEVOTHYROXINE [Concomitant]
     Dosage: 100 MG, QD
     Route: 048
     Dates: start: 2008
  4. SIMVASTATINE [Concomitant]
     Dosage: 40 MG, QD
     Route: 048
     Dates: start: 201306
  5. METFORMINE [Concomitant]
     Dosage: 2550 MG, QD
     Route: 048

REACTIONS (2)
  - Blood glucose fluctuation [Not Recovered/Not Resolved]
  - Viral infection [Recovered/Resolved]
